FAERS Safety Report 6113303-X (Version None)
Quarter: 2009Q1

REPORT INFORMATION
  Report Type: 
  Country: None (occurrence: None)
  Receive Date: 20090312
  Receipt Date: 20060621
  Transmission Date: 20090719
  Serious: No
  Sender: FDA-Public Use
  Company Number: US-ABBOTT-08P-163-0456409-00

PATIENT
  Weight: 81.72 kg

DRUGS (1)
  1. DEPAKOTE [Suspect]
     Indication: ALCOHOL WITHDRAWAL SYNDROME
     Route: 048

REACTIONS (1)
  - SOMNOLENCE [None]
